FAERS Safety Report 10403421 (Version 1)
Quarter: 2014Q3

REPORT INFORMATION
  Report Type: Spontaneous
  Country: CH (occurrence: CH)
  Receive Date: 20140822
  Receipt Date: 20140822
  Transmission Date: 20150326
  Serious: Yes (Other)
  Sender: FDA-Public Use
  Company Number: PHHY2014CH102519

PATIENT
  Age: 88 Year
  Sex: Female

DRUGS (1)
  1. CEFEPIME [Suspect]
     Active Substance: CEFEPIME\CEFEPIME HYDROCHLORIDE
     Indication: DEVICE RELATED INFECTION
     Dosage: 2 G, BID

REACTIONS (4)
  - Aphasia [Recovered/Resolved]
  - Myoclonus [Recovered/Resolved]
  - Delirium [Recovered/Resolved]
  - Toxicity to various agents [Recovered/Resolved]
